FAERS Safety Report 24524295 (Version 3)
Quarter: 2024Q4

REPORT INFORMATION
  Report Type: Report from Study
  Country: CA (occurrence: CA)
  Receive Date: 20241018
  Receipt Date: 20241115
  Transmission Date: 20250114
  Serious: Yes (Hospitalization, Other)
  Sender: ABBVIE
  Company Number: CA-ABBVIE-5934596

PATIENT
  Age: 71 Year
  Sex: Female

DRUGS (10)
  1. FOSCARBIDOPA\FOSLEVODOPA [Suspect]
     Active Substance: FOSCARBIDOPA\FOSLEVODOPA
     Indication: Parkinson^s disease
     Route: 058
     Dates: start: 20240912
  2. FOSCARBIDOPA\FOSLEVODOPA [Suspect]
     Active Substance: FOSCARBIDOPA\FOSLEVODOPA
     Route: 058
  3. FOSCARBIDOPA\FOSLEVODOPA [Suspect]
     Active Substance: FOSCARBIDOPA\FOSLEVODOPA
     Route: 058
  4. IBSRELA [Concomitant]
     Active Substance: TENAPANOR HYDROCHLORIDE
     Indication: Product used for unknown indication
  5. FRAGMIN [Concomitant]
     Active Substance: DALTEPARIN SODIUM
     Indication: Product used for unknown indication
  6. BENSERAZIDE\LEVODOPA [Concomitant]
     Active Substance: BENSERAZIDE\LEVODOPA
     Indication: Product used for unknown indication
  7. NEUPRO [Concomitant]
     Active Substance: ROTIGOTINE
     Indication: Product used for unknown indication
     Dosage: PATCH
  8. VITAMIN B12 [Concomitant]
     Active Substance: CYANOCOBALAMIN
     Indication: Product used for unknown indication
  9. POLYETHYLENE GLYCOL 3350 [Concomitant]
     Active Substance: POLYETHYLENE GLYCOL 3350
     Indication: Product used for unknown indication
  10. CEPHALEXIN [Concomitant]
     Active Substance: CEPHALEXIN
     Indication: Product used for unknown indication
     Dates: start: 20240922

REACTIONS (19)
  - Pulmonary thrombosis [Not Recovered/Not Resolved]
  - Sleep disorder [Unknown]
  - Infusion site mass [Unknown]
  - Malaise [Not Recovered/Not Resolved]
  - Therapeutic product effect delayed [Unknown]
  - Infusion site haemorrhage [Unknown]
  - Dysstasia [Unknown]
  - Erythema [Unknown]
  - Fatigue [Unknown]
  - Dyspnoea [Unknown]
  - Contusion [Unknown]
  - Infusion site pain [Unknown]
  - Tremor [Unknown]
  - Infection [Unknown]
  - Catheter site bruise [Unknown]
  - Dyspepsia [Unknown]
  - Flushing [Unknown]
  - Incorrect product administration duration [Unknown]
  - Device issue [Unknown]

NARRATIVE: CASE EVENT DATE: 20240101
